FAERS Safety Report 11939615 (Version 1)
Quarter: 2016Q1

REPORT INFORMATION
  Report Type: Spontaneous
  Country: US (occurrence: US)
  Receive Date: 20160122
  Receipt Date: 20160122
  Transmission Date: 20160526
  Serious: Yes (Other)
  Sender: FDA-Public Use
  Company Number: US-HORIZON-PRE-0011-2016

PATIENT
  Age: 87 Year
  Sex: Female

DRUGS (2)
  1. PREDNISONE. [Suspect]
     Active Substance: PREDNISONE
     Indication: PULMONARY FIBROSIS
     Dosage: 10 MG DAILY
     Dates: start: 2009
  2. ACTONEL [Concomitant]
     Active Substance: RISEDRONATE SODIUM
     Indication: OSTEOPOROSIS
     Dates: start: 2007

REACTIONS (1)
  - Osteonecrosis of jaw [Recovering/Resolving]
